FAERS Safety Report 7768745-3 (Version None)
Quarter: 2011Q3

REPORT INFORMATION
  Report Type: 
  Country: None (occurrence: None)
  Receive Date: 20110922
  Receipt Date: 20100917
  Transmission Date: 20111222
  Serious: No
  Sender: FDA-Public Use
  Company Number: US-ASTRAZENECA-2010SE43804

PATIENT
  Age: 63 Year
  Sex: Female
  Weight: 65.8 kg

DRUGS (1)
  1. SEROQUEL XR [Suspect]
     Dosage: 50 MG IN THE MORNING AND 400 MG IN THE EVENING
     Route: 048

REACTIONS (4)
  - DECREASED APPETITE [None]
  - NASOPHARYNGITIS [None]
  - RHINORRHOEA [None]
  - INSOMNIA [None]
